FAERS Safety Report 8852161 (Version 2)
Quarter: 2013Q1

REPORT INFORMATION
  Report Type: Spontaneous
  Country: US (occurrence: US)
  Receive Date: 20121022
  Receipt Date: 20130111
  Transmission Date: 20140127
  Serious: Yes (Hospitalization)
  Sender: FDA-Public Use
  Company Number: US-FRI-1000039373

PATIENT
  Age: 30 Year
  Sex: Male

DRUGS (4)
  1. VIIBRYD [Suspect]
     Indication: DEPRESSION
     Dosage: 10 MG
     Route: 048
     Dates: start: 20120925, end: 20121001
  2. VIIBRYD [Suspect]
     Indication: DEPRESSION
     Dosage: 20 MG
     Route: 048
     Dates: start: 20121002, end: 20121003
  3. TRAZODONE [Concomitant]
     Indication: INSOMNIA
     Dosage: 50 MG QHS
  4. XANAX [Concomitant]
     Indication: ANXIETY
     Dosage: 0.5 MG BID

REACTIONS (1)
  - Suicidal ideation [Recovered/Resolved]
